FAERS Safety Report 6963039-8 (Version None)
Quarter: 2010Q3

REPORT INFORMATION
  Report Type: 
  Country: None (occurrence: None)
  Receive Date: 20100902
  Receipt Date: 20100830
  Transmission Date: 20110219
  Serious: Yes (Death)
  Sender: FDA-Public Use
  Company Number: NL-SANOFI-AVENTIS-2010SA051550

PATIENT
  Age: 70 Year
  Sex: Female

DRUGS (3)
  1. OXALIPLATIN [Suspect]
     Route: 041
  2. AVASTIN [Suspect]
     Route: 042
  3. XELODA [Suspect]
     Route: 048

REACTIONS (3)
  - SEPSIS [None]
  - THROMBOCYTOPENIA [None]
  - VOMITING [None]
